FAERS Safety Report 24675798 (Version 1)
Quarter: 2024Q4

REPORT INFORMATION
  Report Type: Other
  Country: US (occurrence: US)
  Receive Date: 20241128
  Receipt Date: 20241128
  Transmission Date: 20250115
  Serious: No
  Sender: MADRIGAL PHARMACEUTICALS
  Company Number: US-MADRIGAL PHARMACEUTICALS, INC-2024REZ3319

PATIENT

DRUGS (1)
  1. REZDIFFRA [Suspect]
     Active Substance: RESMETIROM
     Indication: Metabolic dysfunction-associated steatohepatitis
     Dosage: 100 MILLIGRAM, UNKNOWN
     Route: 048
     Dates: start: 2024

REACTIONS (5)
  - Hepatomegaly [Unknown]
  - Headache [Unknown]
  - Rash [Unknown]
  - Diarrhoea [Unknown]
  - Dizziness [Unknown]

NARRATIVE: CASE EVENT DATE: 20240101
